FAERS Safety Report 5960907-0 (Version None)
Quarter: 2008Q4

REPORT INFORMATION
  Report Type: 
  Country: None (occurrence: None)
  Receive Date: 20081121
  Receipt Date: 20081113
  Transmission Date: 20090506
  Serious: Yes (Hospitalization)
  Sender: FDA-Public Use
  Company Number: JP-JNJFOC-20081006178

PATIENT
  Age: 78 Year
  Sex: Male

DRUGS (3)
  1. DUROTEP [Suspect]
     Indication: CANCER PAIN
     Dosage: 100MCG/HR OF 3
     Route: 062
  2. NOVAMIN [Suspect]
     Indication: NAUSEA
     Route: 048
  3. NOVAMIN [Suspect]
     Indication: VOMITING
     Route: 048

REACTIONS (2)
  - PLATELET COUNT DECREASED [None]
  - WHITE BLOOD CELL COUNT DECREASED [None]
